FAERS Safety Report 24217114 (Version 3)
Quarter: 2024Q3

REPORT INFORMATION
  Report Type: Spontaneous
  Country: FI (occurrence: FI)
  Receive Date: 20240816
  Receipt Date: 20240923
  Transmission Date: 20241017
  Serious: Yes (Other)
  Sender: CLINIGEN
  Company Number: FI-CLINIGEN-FI-CLI-2024-010400

PATIENT

DRUGS (4)
  1. DEXRAZOXANE [Suspect]
     Active Substance: DEXRAZOXANE
     Indication: Administration site extravasation
     Dosage: D1: 1000 MILLIGRAM/SQ. METER
     Route: 042
     Dates: start: 20240211, end: 20240211
  2. DEXRAZOXANE [Suspect]
     Active Substance: DEXRAZOXANE
     Dosage: D2: 1000 MILLIGRAM/SQ. METER
     Route: 042
     Dates: start: 20240212, end: 20240212
  3. DEXRAZOXANE [Suspect]
     Active Substance: DEXRAZOXANE
     Dosage: D3: 500 MILLIGRAM/SQ. METER
     Route: 042
     Dates: start: 20240213, end: 20240213
  4. DOXORUBICIN [Concomitant]
     Active Substance: DOXORUBICIN
     Indication: Neuroblastoma

REACTIONS (1)
  - Off label use [Unknown]
